FAERS Safety Report 24024920 (Version 1)
Quarter: 2024Q2

REPORT INFORMATION
  Report Type: Report from Study
  Country: DK (occurrence: DK)
  Receive Date: 20240628
  Receipt Date: 20240628
  Transmission Date: 20240715
  Serious: No
  Sender: FDA-Public Use
  Company Number: DK-ROCHE-3550827

PATIENT
  Age: 34 Year
  Sex: Male

DRUGS (1)
  1. ALECTINIB [Suspect]
     Active Substance: ALECTINIB
     Indication: Non-small cell lung cancer
     Dosage: 600 MG PER 2 TIMES. ON 04/MAR/2022 ALECTINIB DOSE REDUCED TO 450 MG PER 2 DAILY? FREQUENCY TEXT:2 TI
     Route: 065
     Dates: start: 20211213

REACTIONS (1)
  - Blood creatine phosphokinase increased [Unknown]

NARRATIVE: CASE EVENT DATE: 20220103
